FAERS Safety Report 4338217-7 (Version None)
Quarter: 2004Q2

REPORT INFORMATION
  Report Type: 
  Country: None (occurrence: None)
  Receive Date: 20040409
  Receipt Date: 20040329
  Transmission Date: 20050107
  Serious: Yes (Hospitalization)
  Sender: FDA-Public Use
  Company Number: 04P-087-0255473-00

PATIENT
  Age: 61 Year
  Sex: Female

DRUGS (4)
  1. BIAXIN [Suspect]
     Indication: GASTRIC ULCER
     Dosage: 400 MG, 2 IN 1 D, PER ORAL
     Route: 048
     Dates: start: 20030611, end: 20030618
  2. AMOXICILLIN [Suspect]
     Dosage: 1500 MG, 1 IN 1 D, PER ORAL
     Route: 048
     Dates: start: 20030611, end: 20030618
  3. LANSOPRAZOLE [Concomitant]
  4. LACROBACILLUS CASEI [Concomitant]

REACTIONS (3)
  - LOOSE STOOLS [None]
  - MOUTH HAEMORRHAGE [None]
  - RASH [None]
